FAERS Safety Report 10206864 (Version 1)
Quarter: 2014Q2

REPORT INFORMATION
  Report Type: Spontaneous
  Country: US (occurrence: None)
  Receive Date: 20140528
  Receipt Date: 20140528
  Transmission Date: 20141212
  Serious: Yes (Other)
  Sender: FDA-Public Use
  Company Number: None

PATIENT
  Age: 76 Year
  Sex: Male
  Weight: 97.3 kg

DRUGS (1)
  1. HYALURONIC ACID [Suspect]
     Indication: OSTEOARTHRITIS
     Dates: start: 20140513

REACTIONS (2)
  - Contusion [None]
  - Skin haemorrhage [None]
